FAERS Safety Report 12834095 (Version 1)
Quarter: 2016Q4

REPORT INFORMATION
  Report Type: Spontaneous
  Country: US (occurrence: US)
  Receive Date: 20161010
  Receipt Date: 20161010
  Transmission Date: 20170207
  Serious: Yes (Other)
  Sender: FDA-Public Use
  Company Number: US-TEVA-699565USA

PATIENT
  Sex: Female

DRUGS (1)
  1. BUPRENORPHINE. [Suspect]
     Active Substance: BUPRENORPHINE
     Dosage: 8MG/ 12MG
     Route: 065

REACTIONS (4)
  - Product substitution issue [Unknown]
  - Feeling abnormal [Unknown]
  - Insomnia [Unknown]
  - Drug dependence [Unknown]
